FAERS Safety Report 13545813 (Version 1)
Quarter: 2017Q2

REPORT INFORMATION
  Report Type: Spontaneous
  Country: US (occurrence: US)
  Receive Date: 20170515
  Receipt Date: 20170515
  Transmission Date: 20170830
  Serious: No
  Sender: FDA-Public Use
  Company Number: US-WARNER CHILCOTT-2016-002980

PATIENT
  Age: 84 Year
  Sex: Female

DRUGS (1)
  1. RISEDRONATE [Suspect]
     Active Substance: RISEDRONATE SODIUM
     Dosage: UNKNOWN
     Route: 065
     Dates: start: 20160916

REACTIONS (2)
  - Gait disturbance [Unknown]
  - Dry skin [Unknown]

NARRATIVE: CASE EVENT DATE: 201609
